FAERS Safety Report 9786260 (Version 1)
Quarter: 2013Q4

REPORT INFORMATION
  Report Type: Spontaneous
  Country: FR (occurrence: None)
  Receive Date: 20131224
  Receipt Date: 20131224
  Transmission Date: 20140711
  Serious: Yes (Other)
  Sender: FDA-Public Use
  Company Number: 2013361811

PATIENT
  Age: 30 Year
  Sex: Female

DRUGS (1)
  1. FRAGMINE [Suspect]
     Indication: THROMBOSIS PROPHYLAXIS
     Route: 058
     Dates: start: 20131118

REACTIONS (1)
  - Thrombocytosis [None]
